FAERS Safety Report 26053102 (Version 1)
Quarter: 2025Q4

REPORT INFORMATION
  Report Type: Spontaneous
  Country: US (occurrence: None)
  Receive Date: 20251114
  Receipt Date: 20251114
  Transmission Date: 20260117
  Serious: No
  Sender: FDA-CTU
  Company Number: None

PATIENT
  Age: 54 Year
  Sex: Female

DRUGS (2)
  1. KISQALI [Suspect]
     Active Substance: RIBOCICLIB SUCCINATE
     Dosage: 400 MG DAILY X21 DAY?
  2. KISQALI [Concomitant]
     Active Substance: RIBOCICLIB SUCCINATE
     Dates: start: 20250802

REACTIONS (2)
  - Vomiting [None]
  - Dizziness [None]

NARRATIVE: CASE EVENT DATE: 20251110
